FAERS Safety Report 8897095 (Version 1)
Quarter: 2012Q4

REPORT INFORMATION
  Report Type: 
  Country: US (occurrence: US)
  Receive Date: 20121108
  Receipt Date: 20121108
  Transmission Date: 20130627
  Serious: No
  Sender: FDA-Public Use
  Company Number: US-AMGEN-USASP2012025503

PATIENT
  Age: 55 Year
  Sex: Male

DRUGS (7)
  1. ENBREL [Suspect]
     Indication: PRODUCT USED FOR UNKNOWN INDICATION
     Dosage: 50 mg, qwk
  2. LISINOPRIL [Concomitant]
     Dosage: 5 mg, UNK
  3. ACYCLOVIR                          /00587301/ [Concomitant]
     Dosage: 400 mg, UNK
  4. FISH OIL [Concomitant]
     Dosage: 1000 mg, UNK
  5. CALCIUM [Concomitant]
     Dosage: 500 mg, UNK
  6. GLUCOSE + CHONDROITIN [Concomitant]
     Dosage: UNK
  7. ASPIRIN [Concomitant]
     Dosage: 81 mg, UNK

REACTIONS (1)
  - Upper respiratory tract infection [Recovered/Resolved]
